FAERS Safety Report 9258715 (Version 3)
Quarter: 2013Q3

REPORT INFORMATION
  Report Type: Spontaneous
  Country: JP (occurrence: JP)
  Receive Date: 20130426
  Receipt Date: 20130807
  Transmission Date: 20140515
  Serious: Yes (Hospitalization, Other)
  Sender: FDA-Public Use
  Company Number: JP-AMGEN-JPNSP2013028979

PATIENT
  Age: 73 Year
  Sex: Female
  Weight: 61 kg

DRUGS (2)
  1. VECTIBIX [Suspect]
     Indication: RECTAL CANCER
     Dosage: 390 MG, Q2WK
     Route: 041
     Dates: start: 20130404, end: 20130404
  2. IRINOTECAN HYDROCHLORIDE [Suspect]
     Indication: RECTAL CANCER
     Dosage: 140 MG, Q2WK
     Route: 041
     Dates: start: 20130404, end: 20130404

REACTIONS (6)
  - Skin disorder [Recovering/Resolving]
  - Febrile neutropenia [Recovered/Resolved]
  - Polymyositis [Not Recovered/Not Resolved]
  - Atypical pneumonia [Recovered/Resolved]
  - Dehydration [Recovered/Resolved]
  - Decreased appetite [Recovered/Resolved]
